FAERS Safety Report 25673788 (Version 1)
Quarter: 2025Q3

REPORT INFORMATION
  Report Type: Spontaneous
  Country: US (occurrence: US)
  Receive Date: 20250813
  Receipt Date: 20250813
  Transmission Date: 20251021
  Serious: No
  Sender: NOVARTIS
  Company Number: US-002147023-NVSC2025US127237

PATIENT
  Sex: Female

DRUGS (1)
  1. KESIMPTA [Suspect]
     Active Substance: OFATUMUMAB
     Indication: Product used for unknown indication
     Dosage: 200 MG, QW (INJECTION)
     Route: 050
     Dates: start: 20250804

REACTIONS (2)
  - Pyrexia [Unknown]
  - Asthenia [Unknown]
